FAERS Safety Report 7046833-7 (Version None)
Quarter: 2010Q4

REPORT INFORMATION
  Report Type: 
  Country: None (occurrence: None)
  Receive Date: 20101015
  Receipt Date: 20101007
  Transmission Date: 20110411
  Serious: Yes (Hospitalization)
  Sender: FDA-Public Use
  Company Number: US-JNJFOC-20101002404

PATIENT
  Sex: Female
  Weight: 73.48 kg

DRUGS (5)
  1. SANDOZ FENTANYL TRANSDERMAL SYSTEM [Suspect]
     Indication: BACK PAIN
     Route: 062
  2. SANDOZ FENTANYL TRANSDERMAL SYSTEM [Suspect]
     Route: 062
  3. SANDOZ FENTANYL TRANSDERMAL SYSTEM [Suspect]
     Route: 062
  4. SANDOZ FENTANYL TRANSDERMAL SYSTEM [Suspect]
     Dosage: NDC#: 0781-7111-55
     Route: 062
  5. SANDOZ FENTANYL TRANSDERMAL SYSTEM [Suspect]
     Dosage: NDC#: 0781-7241-55
     Route: 062

REACTIONS (2)
  - APPLICATION SITE ERYTHEMA [None]
  - BACK DISORDER [None]
